FAERS Safety Report 8583895-X (Version None)
Quarter: 2012Q3

REPORT INFORMATION
  Report Type: 
  Country: None (occurrence: None)
  Receive Date: 20120810
  Receipt Date: 20120802
  Transmission Date: 20120928
  Serious: Yes (Disabling, Other)
  Sender: FDA-Public Use
  Company Number: GB-009507513-1208GBR002317

PATIENT

DRUGS (7)
  1. ATORVASTATIN [Suspect]
     Dosage: 40 MG, UNK
     Route: 048
  2. AMLODIPINE [Concomitant]
  3. BENDROFLUMETHIAZIDE [Concomitant]
  4. ZOCOR [Suspect]
     Indication: HYPERCHOLESTEROLAEMIA
     Dosage: 40 MG, UNK
     Route: 048
     Dates: start: 20070201, end: 20120501
  5. PERINDOPRIL TERT-BUTYLAMINE RATIOPHARM [Concomitant]
  6. PERSANTIN [Concomitant]
  7. ASPIRIN [Concomitant]

REACTIONS (3)
  - PAIN IN EXTREMITY [None]
  - ARTHRITIS [None]
  - AMNESIA [None]
